FAERS Safety Report 10210837 (Version 1)
Quarter: 2014Q2

REPORT INFORMATION
  Report Type: Spontaneous
  Country: ES (occurrence: ES)
  Receive Date: 20140602
  Receipt Date: 20140602
  Transmission Date: 20141212
  Serious: Yes (Hospitalization, Other)
  Sender: FDA-Public Use
  Company Number: PHHY2014ES066791

PATIENT
  Age: 35 Year
  Sex: 0

DRUGS (2)
  1. ESTRADIOL [Suspect]
     Dosage: 100 UG/DAY
  2. CYPROTERONE [Suspect]
     Dosage: 50 MG, BID

REACTIONS (5)
  - Meningioma benign [Unknown]
  - Visual impairment [Recovered/Resolved]
  - Headache [Recovered/Resolved]
  - Visual field defect [Recovered/Resolved]
  - Optic atrophy [Unknown]
